FAERS Safety Report 4743725-0 (Version None)
Quarter: 2005Q3

REPORT INFORMATION
  Report Type: 
  Country: None (occurrence: None)
  Receive Date: 20050812
  Receipt Date: 20050810
  Transmission Date: 20060218
  Serious: Yes (Other)
  Sender: FDA-Public Use
  Company Number: US-GLAXOSMITHKLINE-A0569681A

PATIENT
  Age: 37 Year
  Sex: Female

DRUGS (5)
  1. PAROXETINE HCL [Suspect]
     Indication: DEPRESSION
     Dosage: 40MG TWICE PER DAY
     Route: 048
     Dates: start: 20040101, end: 20040101
  2. TEGRETOL [Concomitant]
  3. PROAMATINE [Concomitant]
  4. DEPO-PROVERA [Concomitant]
  5. PAXIL [Concomitant]
     Indication: DEPRESSION
     Route: 065
     Dates: end: 20040101

REACTIONS (3)
  - CONVULSION [None]
  - OVERDOSE [None]
  - PHARMACEUTICAL PRODUCT COMPLAINT [None]
